FAERS Safety Report 6188301-0 (Version None)
Quarter: 2009Q2

REPORT INFORMATION
  Report Type: 
  Country: None (occurrence: None)
  Receive Date: 20090513
  Receipt Date: 20090430
  Transmission Date: 20091009
  Serious: Yes (Other)
  Sender: FDA-Public Use
  Company Number: US-PFIZER INC-2009207507

PATIENT
  Age: 18 Year
  Sex: Female

DRUGS (1)
  1. GEODON [Suspect]
     Indication: PERSONALITY DISORDER

REACTIONS (1)
  - TRICHOTILLOMANIA [None]
